FAERS Safety Report 4784338-4 (Version None)
Quarter: 2005Q3

REPORT INFORMATION
  Report Type: 
  Country: None (occurrence: None)
  Receive Date: 20050930
  Receipt Date: 20050801
  Transmission Date: 20060218
  Serious: Yes (Other)
  Sender: FDA-Public Use
  Company Number: PHEH2005US08475

PATIENT
  Age: 52 Year
  Sex: Female
  Weight: 122 kg

DRUGS (9)
  1. SANDOSTATIN LAR [Suspect]
     Indication: PANCREATITIS
     Dosage: UNK, UNK
     Dates: start: 20050801
  2. ZYRTEC [Concomitant]
     Indication: HYPERSENSITIVITY
     Dosage: 20 MG, UNK
  3. ACIPHEX [Concomitant]
     Indication: GASTROOESOPHAGEAL REFLUX DISEASE
     Dosage: 40 MG, UNK
  4. ZOFRAN [Concomitant]
     Indication: NAUSEA
     Dosage: 40 MG, PRN
  5. TRAMADOL [Concomitant]
     Indication: PAIN
     Dosage: 50 MG, PRN
  6. DARVOCET-N 100 [Concomitant]
     Indication: PAIN
     Dosage: 1 TAB PRN
  7. PROCRIT                            /00909301/ [Concomitant]
     Dosage: 40,000 UNITS
  8. PROCRIT                            /00909301/ [Concomitant]
     Dosage: 40,000 UNITS
  9. SANDOSTATIN [Suspect]
     Indication: PANCREATITIS
     Dosage: UNK, UNK
     Dates: start: 20050628

REACTIONS (6)
  - BIOPSY BREAST [None]
  - BIOPSY SKIN [None]
  - BREAST FIBROSIS [None]
  - BREAST MASS [None]
  - BREAST PAIN [None]
  - BREAST TENDERNESS [None]
